FAERS Safety Report 5683563-8 (Version None)
Quarter: 2008Q1

REPORT INFORMATION
  Report Type: 
  Country: None (occurrence: None)
  Receive Date: 20080328
  Receipt Date: 20080318
  Transmission Date: 20080703
  Serious: Yes (Death, Hospitalization, Other)
  Sender: FDA-Public Use
  Company Number: GB-RANBAXY-2007RR-09505

PATIENT

DRUGS (3)
  1. IBUPROFEN TABLETS BP 200MG [Suspect]
  2. ACETAMINOPHEN [Suspect]
  3. ACETYLSALICYLIC ACID SRT [Concomitant]

REACTIONS (4)
  - ACUTE HEPATIC FAILURE [None]
  - OVERDOSE [None]
  - RENAL FAILURE ACUTE [None]
  - SUICIDE ATTEMPT [None]
